FAERS Safety Report 10416820 (Version 1)
Quarter: 2014Q3

REPORT INFORMATION
  Report Type: Spontaneous
  Country: IT (occurrence: IT)
  Receive Date: 20140828
  Receipt Date: 20140828
  Transmission Date: 20150326
  Serious: Yes (Other)
  Sender: FDA-Public Use
  Company Number: IT-BRISTOL-MYERS SQUIBB COMPANY-21339544

PATIENT
  Age: 85 Year
  Sex: Male
  Weight: 65 kg

DRUGS (1)
  1. ERBITUX [Suspect]
     Active Substance: CETUXIMAB
     Indication: COLON CANCER
     Dosage: 1DF = 250 MG/M
     Route: 042
     Dates: start: 20131016, end: 20131218

REACTIONS (3)
  - Dermatitis acneiform [Recovering/Resolving]
  - Palmar-plantar erythrodysaesthesia syndrome [Recovering/Resolving]
  - Livedo reticularis [Recovering/Resolving]

NARRATIVE: CASE EVENT DATE: 20140101
